FAERS Safety Report 6937657-7 (Version None)
Quarter: 2010Q3

REPORT INFORMATION
  Report Type: 
  Country: None (occurrence: None)
  Receive Date: 20100820
  Receipt Date: 20100820
  Transmission Date: 20110219
  Serious: No
  Sender: FDA-Public Use
  Company Number: None

PATIENT
  Age: 28 Year
  Sex: Female
  Weight: 67.1324 kg

DRUGS (1)
  1. NEXT CHOICE 0.75MG [Suspect]
     Indication: CONTRACEPTION
     Dosage: 1 TAB EVERY TWELVE HRS PO
     Route: 048
     Dates: start: 20100727, end: 20100728

REACTIONS (1)
  - PREGNANCY AFTER POST COITAL CONTRACEPTION [None]
